FAERS Safety Report 14176999 (Version 1)
Quarter: 2017Q4

REPORT INFORMATION
  Report Type: Spontaneous
  Country: US (occurrence: US)
  Receive Date: 20171110
  Receipt Date: 20171110
  Transmission Date: 20180321
  Serious: Yes (Other)
  Sender: FDA-Public Use
  Company Number: None

PATIENT
  Age: 44 Day
  Sex: Female
  Weight: 85.5 kg

DRUGS (5)
  1. BIOTIN [Concomitant]
     Active Substance: BIOTIN
  2. CO ENZYME Q 10 [Concomitant]
  3. VITAMIN B COMPLEX [Concomitant]
     Active Substance: CYANOCOBALAMIN\DEXPANTHENOL\NIACINAMIDE\PYRIDOXINE HYDROCHLORIDE\RIBOFLAVIN 5^-PHOSPHATE SODIUM\THIAMINE HYDROCHLORIDE\VITAMIN B COMPLEX
  4. LETRAZOLE [Suspect]
     Active Substance: LETROZOLE
     Indication: INFERTILITY
     Route: 048
     Dates: start: 20171014, end: 20171018
  5. PRENATAL VITAMIN [Concomitant]
     Active Substance: VITAMINS

REACTIONS (4)
  - Blood oestrogen decreased [None]
  - Libido disorder [None]
  - Anorgasmia [None]
  - Menopause [None]

NARRATIVE: CASE EVENT DATE: 20171014
